FAERS Safety Report 5734348-5 (Version None)
Quarter: 2008Q2

REPORT INFORMATION
  Report Type: 
  Country: None (occurrence: None)
  Receive Date: 20080507
  Receipt Date: 20080424
  Transmission Date: 20081010
  Serious: Yes (Other)
  Sender: FDA-Public Use
  Company Number: ENTC2008-0128

PATIENT
  Age: 94 Year
  Sex: Female

DRUGS (4)
  1. STALEVO 100 [Suspect]
     Indication: PARKINSON'S DISEASE
     Dosage: 450 MG,  3 IN 1 D, ORAL
     Route: 048
     Dates: start: 20080301
  2. MIRAPEX [Suspect]
     Dosage: 1 MG
     Dates: start: 20080301
  3. ZOLOFT [Concomitant]
  4. ALPRAZOLAM [Concomitant]

REACTIONS (5)
  - ABDOMINAL DISTENSION [None]
  - DYSKINESIA [None]
  - DYSPNOEA [None]
  - FATIGUE [None]
  - HALLUCINATION [None]
